FAERS Safety Report 6511890-0 (Version None)
Quarter: 2009Q4

REPORT INFORMATION
  Report Type: 
  Country: None (occurrence: None)
  Receive Date: 20091222
  Receipt Date: 20090622
  Transmission Date: 20100525
  Serious: No
  Sender: FDA-Public Use
  Company Number: US-ASTRAZENECA-2009UW16792

PATIENT
  Age: 72 Year
  Sex: Female
  Weight: 100.2 kg

DRUGS (7)
  1. CRESTOR [Suspect]
     Route: 048
  2. WARFARIN SODIUM [Concomitant]
     Indication: ANTICOAGULANT THERAPY
  3. IRON SUPPLEMENT [Concomitant]
  4. LISINOPRIL [Concomitant]
  5. ISOSORBIDE [Concomitant]
  6. TRAVISTIN [Concomitant]
  7. XLENTI [Concomitant]

REACTIONS (5)
  - ABDOMINAL DISTENSION [None]
  - FLATULENCE [None]
  - MUSCLE SPASMS [None]
  - OEDEMA PERIPHERAL [None]
  - PAIN IN EXTREMITY [None]
